FAERS Safety Report 12818887 (Version 1)
Quarter: 2016Q4

REPORT INFORMATION
  Report Type: Spontaneous
  Country: US (occurrence: US)
  Receive Date: 20161006
  Receipt Date: 20161006
  Transmission Date: 20170207
  Serious: No
  Sender: FDA-Public Use
  Company Number: US-BAYER-2016-190391

PATIENT
  Sex: Male

DRUGS (1)
  1. CLARITIN [Suspect]
     Active Substance: LORATADINE

REACTIONS (7)
  - Dizziness [Unknown]
  - Gait disturbance [None]
  - Thyroid disorder [None]
  - Pain [None]
  - Anxiety [None]
  - Paraesthesia [Unknown]
  - Nausea [None]
